FAERS Safety Report 8156742-8 (Version None)
Quarter: 2012Q1

REPORT INFORMATION
  Report Type: 
  Country: None (occurrence: None)
  Receive Date: 20120222
  Receipt Date: 20120217
  Transmission Date: 20120608
  Serious: Yes (Other)
  Sender: FDA-Public Use
  Company Number: CO-JNJFOC-20120204582

PATIENT
  Age: 81 Year
  Sex: Female

DRUGS (1)
  1. GALANTAMINE HYDROBROMIDE [Suspect]
     Indication: AMNESIA
     Route: 048

REACTIONS (4)
  - ABASIA [None]
  - VOMITING [None]
  - HYPERTENSIVE CRISIS [None]
  - DIZZINESS [None]
